FAERS Safety Report 25201165 (Version 1)
Quarter: 2025Q2

REPORT INFORMATION
  Report Type: Other
  Country: CA (occurrence: CA)
  Receive Date: 20250416
  Receipt Date: 20250416
  Transmission Date: 20250716
  Serious: Yes (Death, Hospitalization, Other)
  Sender: INTERCEPT PHARMACEUTICALS
  Company Number: CA-INTERCEPT-PM2022001515

PATIENT
  Age: 69 Year
  Sex: Male

DRUGS (6)
  1. OCALIVA [Suspect]
     Active Substance: OBETICHOLIC ACID
     Indication: Primary biliary cholangitis
     Dosage: 5 MILLIGRAM, QD
     Route: 048
     Dates: start: 20201127, end: 2023
  2. OCALIVA [Suspect]
     Active Substance: OBETICHOLIC ACID
     Dosage: 5 MG, QD
     Route: 048
  3. URSODIOL [Concomitant]
     Active Substance: URSODIOL
     Dosage: 1250 MG, QD
     Dates: start: 2015
  4. URSODIOL [Concomitant]
     Active Substance: URSODIOL
     Dates: start: 2015
  5. REMICADE [Concomitant]
     Active Substance: INFLIXIMAB
     Indication: Colitis ulcerative
  6. REMICADE [Concomitant]
     Active Substance: INFLIXIMAB

REACTIONS (7)
  - Death [Fatal]
  - Hip fracture [Recovering/Resolving]
  - Fracture treatment [Recovering/Resolving]
  - Chronic hepatic failure [Unknown]
  - Blood cholesterol abnormal [Unknown]
  - Fall [Unknown]
  - Blood alkaline phosphatase increased [Recovering/Resolving]

NARRATIVE: CASE EVENT DATE: 20220701
